FAERS Safety Report 7220817-8 (Version None)
Quarter: 2011Q1

REPORT INFORMATION
  Report Type: 
  Country: None (occurrence: None)
  Receive Date: 20110112
  Receipt Date: 20110106
  Transmission Date: 20110831
  Serious: Yes (Hospitalization)
  Sender: FDA-Public Use
  Company Number: BR-BIOGENIDEC-2009BI004707

PATIENT
  Age: 50 Year
  Sex: Female
  Weight: 64 kg

DRUGS (4)
  1. UNSPECIFIED MEDICINE [Concomitant]
     Indication: DEPRESSION
  2. ANGELIQ [Concomitant]
     Indication: MENOPAUSE
  3. AVONEX [Suspect]
     Route: 030
     Dates: start: 19950101
  4. AVONEX [Suspect]
     Indication: MULTIPLE SCLEROSIS
     Route: 030
     Dates: start: 19950101

REACTIONS (21)
  - MOBILITY DECREASED [None]
  - BREAST CALCIFICATIONS [None]
  - BALANCE DISORDER [None]
  - DISTURBANCE IN ATTENTION [None]
  - BENIGN BREAST NEOPLASM [None]
  - NERVOUSNESS [None]
  - MULTIPLE SCLEROSIS RELAPSE [None]
  - OSTEOPOROSIS [None]
  - EMOTIONAL DISORDER [None]
  - VARICOSE VEIN [None]
  - MULTIPLE SCLEROSIS [None]
  - INSOMNIA [None]
  - ANXIETY [None]
  - DEPRESSION [None]
  - CRYING [None]
  - WEIGHT INCREASED [None]
  - CENTRAL NERVOUS SYSTEM LESION [None]
  - FATIGUE [None]
  - MALAISE [None]
  - PARAESTHESIA [None]
  - MUSCULOSKELETAL DISORDER [None]
